FAERS Safety Report 17500703 (Version 1)
Quarter: 2020Q1

REPORT INFORMATION
  Report Type: Spontaneous
  Country: TR (occurrence: TR)
  Receive Date: 20200305
  Receipt Date: 20200305
  Transmission Date: 20200409
  Serious: Yes (Hospitalization)
  Sender: FDA-Public Use
  Company Number: TR-ACCORD-174613

PATIENT
  Age: 22 Year
  Sex: Female

DRUGS (1)
  1. METHOTREXATE. [Suspect]
     Active Substance: METHOTREXATE
     Indication: ECTOPIC PREGNANCY
     Dosage: SINGLE DOSE OF 50 MG/M2 (86 MG) METHOTREXATE WAS ADMINISTERED INTRAMUSCULARLY ON THE 10TH DAY.
     Route: 030
     Dates: start: 201803

REACTIONS (1)
  - Retinal artery occlusion [Recovered/Resolved]

NARRATIVE: CASE EVENT DATE: 2018
